FAERS Safety Report 5831232-3 (Version None)
Quarter: 2008Q3

REPORT INFORMATION
  Report Type: 
  Country: None (occurrence: None)
  Receive Date: 20080801
  Receipt Date: 20080125
  Transmission Date: 20090109
  Serious: No
  Sender: FDA-Public Use
  Company Number: US-BRISTOL-MYERS SQUIBB COMPANY-14055115

PATIENT
  Age: 92 Year
  Sex: Male
  Weight: 75 kg

DRUGS (4)
  1. COUMADIN [Suspect]
     Indication: HYPERTENSION
     Dosage: ONE MONTH AGO IT WAS 3MG DAILY FOR 6 DAYS/WEEK,3MG,2MG TABS FOR ONE DAY/WEEK.
     Route: 048
  2. COUMADIN [Suspect]
     Indication: ATRIAL FIBRILLATION
     Dosage: ONE MONTH AGO IT WAS 3MG DAILY FOR 6 DAYS/WEEK,3MG,2MG TABS FOR ONE DAY/WEEK.
     Route: 048
  3. AVAPRO [Suspect]
     Indication: HYPERTENSION
     Dosage: 1 DOSAGEFORM = 1 OR 1/2 TABLET
     Route: 048
  4. ASPIRIN [Concomitant]

REACTIONS (5)
  - BALANCE DISORDER [None]
  - BLOOD PRESSURE FLUCTUATION [None]
  - DIZZINESS [None]
  - FALL [None]
  - INTERNATIONAL NORMALISED RATIO FLUCTUATION [None]
